FAERS Safety Report 15955208 (Version 1)
Quarter: 2019Q1

REPORT INFORMATION
  Report Type: Spontaneous
  Country: US (occurrence: US)
  Receive Date: 20190213
  Receipt Date: 20190213
  Transmission Date: 20190417
  Serious: Yes (Other)
  Sender: FDA-Public Use
  Company Number: US-ROCHE-2262814

PATIENT
  Age: 70 Year
  Sex: Male

DRUGS (1)
  1. TECENTRIQ [Suspect]
     Active Substance: ATEZOLIZUMAB
     Indication: LUNG NEOPLASM MALIGNANT
     Dosage: PATIENT IN BETWEEN CYCLES NOW ;
     Route: 065
     Dates: start: 20181210

REACTIONS (1)
  - Metastases to eye [Unknown]

NARRATIVE: CASE EVENT DATE: 20190201
